FAERS Safety Report 7686551-5 (Version None)
Quarter: 2011Q3

REPORT INFORMATION
  Report Type: 
  Country: None (occurrence: None)
  Receive Date: 20110811
  Receipt Date: 20110728
  Transmission Date: 20111222
  Serious: Yes (Other)
  Sender: FDA-Public Use
  Company Number: EU-2011-10128

PATIENT
  Sex: Male
  Weight: 61 kg

DRUGS (14)
  1. EMOVAT (CLOBETASONE BUTYRATE) CREAM [Concomitant]
  2. IMOVANE (ZOPICLONE) [Concomitant]
  3. SAMSCA [Suspect]
     Indication: INAPPROPRIATE ANTIDIURETIC HORMONE SECRETION
     Dosage: 7.5 MG , DAILY DOSE
     Dates: start: 20110709, end: 20110710
  4. FELODIPIN (FELODIPINE) [Concomitant]
  5. VALACYCLOVIR [Concomitant]
  6. SALINE (SALINE) SOLUTION FOR INFUSION [Concomitant]
  7. OMEPRAZOLE [Concomitant]
  8. CILAXORAL (SODIUM PICOSULFATE) [Concomitant]
  9. AMITRIPTYLINE HCL [Concomitant]
  10. LACTULOSE [Concomitant]
  11. OXASCAND (OXAZEPAM) [Concomitant]
  12. TRAMADOL HCL [Concomitant]
  13. BEHEPAN (CYANOCOBALAMIN) [Concomitant]
  14. FOLACIN (FOLIC ACID) [Concomitant]

REACTIONS (2)
  - BLOOD CREATININE INCREASED [None]
  - WRONG TECHNIQUE IN DRUG USAGE PROCESS [None]
